FAERS Safety Report 14403993 (Version 2)
Quarter: 2019Q3

REPORT INFORMATION
  Report Type: Spontaneous
  Country: GB (occurrence: GB)
  Receive Date: 20180117
  Receipt Date: 20190815
  Transmission Date: 20191004
  Serious: Yes (Hospitalization, Other)
  Sender: FDA-Public Use
  Company Number: GB-TEVA-2017-GB-839128

PATIENT
  Sex: Female

DRUGS (1)
  1. BISOPROLOL 2.5 MG TABLETS [Suspect]
     Active Substance: BISOPROLOL
     Indication: PERIPARTUM CARDIOMYOPATHY
     Route: 065

REACTIONS (2)
  - Maternal exposure during pregnancy [Unknown]
  - Induced labour [Unknown]

NARRATIVE: CASE EVENT DATE: 201801
